FAERS Safety Report 7001167-1 (Version None)
Quarter: 2010Q3

REPORT INFORMATION
  Report Type: 
  Country: None (occurrence: None)
  Receive Date: 20100920
  Receipt Date: 20080529
  Transmission Date: 20110219
  Serious: Yes (Hospitalization, Other)
  Sender: FDA-Public Use
  Company Number: US-ASTRAZENECA-2006UW05636

PATIENT
  Age: 315 Month
  Sex: Male
  Weight: 84.1 kg

DRUGS (27)
  1. SEROQUEL [Suspect]
     Indication: SLEEP DISORDER
     Dosage: 25 MG TO 100 MG
     Route: 048
     Dates: start: 20030301, end: 20060301
  2. SEROQUEL [Suspect]
     Dosage: 25 MG TO 600 MG
     Route: 048
     Dates: start: 20030310
  3. ABILIFY [Concomitant]
     Dates: start: 20030414, end: 20060328
  4. ABILIFY [Concomitant]
     Dates: start: 20070301
  5. GEODON [Concomitant]
     Dates: start: 20030317, end: 20030501
  6. HALDOL [Concomitant]
     Dates: start: 20030312
  7. RISPERDAL [Concomitant]
     Dates: start: 20040225
  8. ZYPREXA [Concomitant]
  9. KLONOPIN [Concomitant]
     Indication: NERVOUSNESS
     Dosage: 1 MG TO 2 MG DAILY
     Route: 048
     Dates: start: 20020111
  10. KLONOPIN [Concomitant]
     Indication: ANXIETY
     Dosage: 1 MG TO 2 MG DAILY
     Route: 048
     Dates: start: 20020111
  11. VALIUM EQ [Concomitant]
     Dosage: 5 MG DISPENSED
     Route: 048
     Dates: start: 20071014
  12. FLUOXETINE HCL [Concomitant]
     Route: 048
     Dates: start: 20020111
  13. NEURONTIN [Concomitant]
     Dosage: 400 MG DISPENSED
     Route: 048
     Dates: start: 20031203
  14. NIACIN [Concomitant]
     Route: 048
     Dates: start: 20060328
  15. OMEPRAZOLE [Concomitant]
     Route: 048
     Dates: start: 20051129
  16. PREVACID [Concomitant]
     Route: 048
     Dates: start: 20050509
  17. PROZAC [Concomitant]
     Dates: start: 20030101
  18. PROZAC [Concomitant]
     Dosage: 20 MG TO 30 MG
     Dates: start: 20060328, end: 20070905
  19. ZOCOR EQ [Concomitant]
     Indication: BLOOD CHOLESTEROL
     Dosage: 40 MG DISPENSED
     Dates: start: 20051117
  20. THORAZINE [Concomitant]
     Dates: start: 20060328
  21. TRAZODONE HCL [Concomitant]
     Dosage: 150 MG TWO TABLETS AT NIGHT
     Dates: start: 20051112
  22. VALTREX [Concomitant]
     Route: 048
     Dates: start: 20020723
  23. VALTREX [Concomitant]
     Dosage: 500 MG DISPENSED
     Route: 048
     Dates: start: 20031203
  24. AMBIEN [Concomitant]
     Dosage: 10 MG DISPENSED
     Route: 048
     Dates: start: 20030618
  25. WELLBUTRIN SR EQ [Concomitant]
     Route: 048
     Dates: start: 20030115
  26. LEXAPRO [Concomitant]
     Dosage: 20 MG-40 MG
     Dates: start: 20070905
  27. KEFLEX [Concomitant]
     Dosage: 250 MG DISPENSED
     Route: 048
     Dates: start: 20020701

REACTIONS (3)
  - PANCREATITIS [None]
  - PANCREATITIS ACUTE [None]
  - PARAESTHESIA [None]
